FAERS Safety Report 5713966-4 (Version None)
Quarter: 2008Q2

REPORT INFORMATION
  Report Type: 
  Country: None (occurrence: None)
  Receive Date: 20080423
  Receipt Date: 20080220
  Transmission Date: 20081010
  Serious: No
  Sender: FDA-Public Use
  Company Number: US-BAYER-200814953NA

PATIENT
  Sex: Female

DRUGS (1)
  1. MIRENA [Suspect]
     Indication: DRUG USE FOR UNKNOWN INDICATION
     Route: 014
     Dates: start: 20071227, end: 20080220

REACTIONS (3)
  - IUCD COMPLICATION [None]
  - PAIN [None]
  - VAGINAL HAEMORRHAGE [None]
